FAERS Safety Report 4565639-1 (Version None)
Quarter: 2005Q1

REPORT INFORMATION
  Report Type: 
  Country: None (occurrence: None)
  Receive Date: 20050131
  Receipt Date: 20050120
  Transmission Date: 20050727
  Serious: Yes (Hospitalization, Other)
  Sender: FDA-Public Use
  Company Number: JP-JNJFOC-20050104765

PATIENT
  Age: 64 Year
  Sex: Male

DRUGS (2)
  1. TARAVID [Suspect]
     Indication: GASTRIC DISORDER
     Route: 049
     Dates: start: 20040515, end: 20040518
  2. ALLOPURINOL [Concomitant]

REACTIONS (8)
  - CARDIOVASCULAR DISORDER [None]
  - GAIT DISTURBANCE [None]
  - IMPAIRED HEALING [None]
  - INFLAMMATION [None]
  - OEDEMA PERIPHERAL [None]
  - SURGICAL PROCEDURE REPEATED [None]
  - TENDON RUPTURE [None]
  - TENDONITIS [None]
